FAERS Safety Report 13349397 (Version 1)
Quarter: 2017Q1

REPORT INFORMATION
  Report Type: Spontaneous
  Country: US (occurrence: US)
  Receive Date: 20170320
  Receipt Date: 20170320
  Transmission Date: 20170428
  Serious: No
  Sender: FDA-Public Use
  Company Number: US-DEPOMED, INC.-US-2016DEP009710

PATIENT

DRUGS (2)
  1. GRALISE [Suspect]
     Active Substance: GABAPENTIN
     Indication: RESTLESS LEGS SYNDROME
     Dosage: 300 MG, EVERY NIGHT AFTER DINNER
     Route: 048
     Dates: start: 20160427, end: 20160501
  2. GRALISE [Suspect]
     Active Substance: GABAPENTIN
     Dosage: 600 MG, ONCE DAILY AT NIGHT AFTER DINNER
     Route: 048
     Dates: start: 20160501

REACTIONS (3)
  - Drug ineffective for unapproved indication [Not Recovered/Not Resolved]
  - Product use issue [Not Recovered/Not Resolved]
  - Drug titration error [Unknown]

NARRATIVE: CASE EVENT DATE: 2016
